FAERS Safety Report 21989711 (Version 1)
Quarter: 2023Q1

REPORT INFORMATION
  Report Type: Report from Study
  Country: BR (occurrence: BR)
  Receive Date: 20230214
  Receipt Date: 20230214
  Transmission Date: 20230418
  Serious: Yes (Other)
  Sender: FDA-Public Use
  Company Number: BR-CELLTRION INC.-2023BR002876

PATIENT

DRUGS (5)
  1. TRUXIMA [Suspect]
     Active Substance: RITUXIMAB-ABBS
     Indication: Dermatomyositis
     Dosage: (NOT STARTED YET)
     Route: 042
  2. PREDNISONE [Concomitant]
     Active Substance: PREDNISONE
     Indication: Dermatomyositis
     Dosage: 2 CAPSULES PER DAY (START: 2 YEARS AGO)
     Route: 048
  3. CYCLOSPORINE [Concomitant]
     Active Substance: CYCLOSPORINE
     Indication: Dermatomyositis
     Dosage: 3 CAPSULES PER DAY (START: 15 DAYS AGO)
     Route: 048
  4. PANTOPRAZOLE [Concomitant]
     Active Substance: PANTOPRAZOLE
     Indication: Dermatomyositis
     Dosage: 1 CAPSULES PER DAY (START: 15 DAYS AGO)
     Route: 048
  5. FIXA-CAL [Concomitant]
     Indication: Blood calcium
     Dosage: 1 CAPSULE PER DAY (START DAY: 15 DAYS AGO)
     Route: 048

REACTIONS (2)
  - Dermatomyositis [Unknown]
  - Off label use [Unknown]
